FAERS Safety Report 6385387-5 (Version None)
Quarter: 2009Q4

REPORT INFORMATION
  Report Type: 
  Country: None (occurrence: None)
  Receive Date: 20091002
  Receipt Date: 20080828
  Transmission Date: 20100525
  Serious: No
  Sender: FDA-Public Use
  Company Number: US-ASTRAZENECA-2008UW17775

PATIENT
  Sex: Female

DRUGS (2)
  1. ARIMIDEX [Suspect]
     Indication: BREAST CANCER
     Route: 048
  2. MULTI-VITAMIN [Concomitant]

REACTIONS (5)
  - ALOPECIA [None]
  - HEADACHE [None]
  - JOINT SWELLING [None]
  - NAIL DISORDER [None]
  - WEIGHT INCREASED [None]
